FAERS Safety Report 24303532 (Version 4)
Quarter: 2024Q4

REPORT INFORMATION
  Report Type: Spontaneous
  Country: US (occurrence: US)
  Receive Date: 20240910
  Receipt Date: 20241007
  Transmission Date: 20250115
  Serious: Yes (Hospitalization)
  Sender: ALKERMES
  Company Number: US-ALKERMES INC.-ALK-2024-002287

PATIENT
  Age: 39 Year
  Sex: Male

DRUGS (2)
  1. VIVITROL [Suspect]
     Active Substance: NALTREXONE
     Indication: Alcohol use disorder
     Dosage: 380 MILLIGRAM, Q28D
     Route: 030
     Dates: start: 20240422, end: 20240620
  2. VIVITROL [Suspect]
     Active Substance: NALTREXONE
     Dosage: 380 MILLIGRAM, Q28D
     Route: 030
     Dates: start: 20231211, end: 20240412

REACTIONS (4)
  - Foot fracture [Unknown]
  - Upper limb fracture [Unknown]
  - Accident [Unknown]
  - Injection site pain [Unknown]

NARRATIVE: CASE EVENT DATE: 20240331
